FAERS Safety Report 18414356 (Version 1)
Quarter: 2020Q4

REPORT INFORMATION
  Report Type: Spontaneous
  Country: US (occurrence: US)
  Receive Date: 20201021
  Receipt Date: 20201021
  Transmission Date: 20210114
  Serious: Yes (Hospitalization, Disabling)
  Sender: FDA-Public Use
  Company Number: None

PATIENT
  Age: 39 Year
  Sex: Female
  Weight: 90 kg

DRUGS (11)
  1. BIRTH CONTROL [Concomitant]
     Active Substance: UNSPECIFIED INGREDIENT
  2. DELUXOTINE [Concomitant]
  3. MULTIVITAMINS [Concomitant]
     Active Substance: VITAMINS
  4. LISINOPRIL. [Concomitant]
     Active Substance: LISINOPRIL
  5. LUPRON [Suspect]
     Active Substance: LEUPROLIDE ACETATE
     Indication: ENDOMETRIOSIS
     Dosage: ?          QUANTITY:1 INJECTION(S);?
     Route: 030
  6. SUMOTRIPTAN [Concomitant]
  7. CALCIUM [Concomitant]
     Active Substance: CALCIUM
  8. LEVOTHYROXIN [Concomitant]
     Active Substance: LEVOTHYROXINE
  9. TRAMADOL. [Concomitant]
     Active Substance: TRAMADOL
  10. MAGNESIUM [Concomitant]
     Active Substance: MAGNESIUM
  11. VITAMIN D [Concomitant]
     Active Substance: VITAMIN D NOS

REACTIONS (12)
  - Condition aggravated [None]
  - Feeling abnormal [None]
  - Loss of personal independence in daily activities [None]
  - Migraine [None]
  - Pain [None]
  - Fatigue [None]
  - Job dissatisfaction [None]
  - Goitre [None]
  - Fibromyalgia [None]
  - Endometriosis [None]
  - Autoimmune thyroiditis [None]
  - Hypothyroidism [None]

NARRATIVE: CASE EVENT DATE: 20171217
